FAERS Safety Report 5465916-6 (Version None)
Quarter: 2007Q3

REPORT INFORMATION
  Report Type: 
  Country: None (occurrence: None)
  Receive Date: 20070924
  Receipt Date: 20070913
  Transmission Date: 20080115
  Serious: Yes (Other)
  Sender: FDA-Public Use
  Company Number: US-JNJFOC-20070900062

PATIENT
  Sex: Male
  Weight: 93.9 kg

DRUGS (18)
  1. TMC125 [Suspect]
     Indication: HIV INFECTION
     Dosage: TEMPORARILY STOPPED
     Route: 048
  2. PREZISTA [Concomitant]
     Indication: HIV INFECTION
     Route: 048
  3. NORVIR [Concomitant]
     Indication: HIV INFECTION
     Route: 048
  4. HIVID [Concomitant]
     Indication: HIV INFECTION
     Route: 048
  5. FUZEON [Concomitant]
     Indication: HIV INFECTION
     Route: 058
  6. LOMOTIL [Concomitant]
     Indication: DIARRHOEA
     Dosage: DOSAGE REPORTED AS 1-2 EVERY 6 HOURS.
     Route: 065
  7. ZOVIRAX [Concomitant]
     Route: 065
  8. HYDROCORTISONE [Concomitant]
     Route: 065
  9. MONOPRIL [Concomitant]
     Route: 065
  10. ANDROGEL [Concomitant]
     Route: 065
  11. DIFLUCAN [Concomitant]
     Route: 065
  12. MEPRON [Concomitant]
     Route: 065
  13. OXANDROLONE [Concomitant]
     Route: 065
  14. CIALIS [Concomitant]
     Route: 065
  15. OMEGA 3 [Concomitant]
     Route: 065
  16. VITAMIN B COMPLEX CAP [Concomitant]
     Route: 065
  17. VITAMIN CAP [Concomitant]
     Route: 065
  18. LYRICA [Concomitant]
     Route: 065

REACTIONS (1)
  - LIVER FUNCTION TEST ABNORMAL [None]
